FAERS Safety Report 8942349 (Version 3)
Quarter: 2013Q1

REPORT INFORMATION
  Report Type: Spontaneous
  Country: US (occurrence: None)
  Receive Date: 20121123
  Receipt Date: 20130108
  Transmission Date: 20140127
  Serious: Yes (Other)
  Sender: FDA-Public Use
  Company Number: 2012-7777

PATIENT
  Age: 71 Year
  Sex: Female

DRUGS (6)
  1. DYSPORT [Suspect]
     Indication: SKIN WRINKLING
     Dosage: 120 UNITS(120 UNITS, 1 IN 1 CYCLE(S)),UNKNOWN
     Dates: start: 20120503, end: 20120503
  2. DYSPORT [Suspect]
     Indication: SKIN WRINKLING
     Dosage: 120 UNITS(120 UNITS, 1 IN 1 CYCLE(S)),UNKNOWN
     Dates: start: 20120503, end: 20120503
  3. DYSPORT [Suspect]
     Indication: SKIN COSMETIC PROCEDURE
     Dosage: 120 UNITS(120 UNITS, 1 IN 1 CYCLE(S)),UNKNOWN
     Dates: start: 20120503, end: 20120503
  4. DYSPORT [Suspect]
     Indication: SKIN WRINKLING
     Dosage: 120 UNITS(120 UNITS, 1 IN 1 CYCLE(S)),UNKNOWN
     Dates: start: 20120503, end: 20120503
  5. DYSPORT [Suspect]
     Indication: PRODUCT USED FOR UNKNOWN INDICATION
     Dosage: 120 UNITS(120 UNITS, 1 IN 1 CYCLE(S)),UNKNOWN
     Dates: start: 20120503, end: 20120503
  6. SYNTHYROID [Concomitant]

REACTIONS (1)
  - Scleroderma [None]
